FAERS Safety Report 7429557-3 (Version None)
Quarter: 2011Q2

REPORT INFORMATION
  Report Type: 
  Country: None (occurrence: None)
  Receive Date: 20110421
  Receipt Date: 20110419
  Transmission Date: 20111010
  Serious: Yes (Hospitalization)
  Sender: FDA-Public Use
  Company Number: A0908600A

PATIENT
  Age: 70 Year
  Sex: Female
  Weight: 86.6 kg

DRUGS (5)
  1. AVANDIA [Suspect]
     Dosage: 8MG PER DAY
     Route: 048
     Dates: start: 20010101, end: 20100223
  2. GLYBURIDE [Concomitant]
  3. PRAVACHOL [Concomitant]
  4. NORVASC [Concomitant]
  5. COZAAR [Concomitant]

REACTIONS (5)
  - FATIGUE [None]
  - STENT PLACEMENT [None]
  - MYOCARDIAL INFARCTION [None]
  - HYPERTENSION [None]
  - CORONARY ARTERY DISEASE [None]
